FAERS Safety Report 23242687 (Version 4)
Quarter: 2024Q3

REPORT INFORMATION
  Report Type: Spontaneous
  Country: US (occurrence: US)
  Receive Date: 20231129
  Receipt Date: 20240813
  Transmission Date: 20241017
  Serious: Yes (Hospitalization)
  Sender: BAUSCH AND LOMB
  Company Number: US-BAUSCH-BL-2023-017751

PATIENT
  Age: 56 Year
  Sex: Male

DRUGS (5)
  1. RIFAXIMIN [Interacting]
     Active Substance: RIFAXIMIN
     Indication: Hepatic encephalopathy
     Route: 065
  2. ATORVASTATIN [Interacting]
     Active Substance: ATORVASTATIN
     Indication: Product used for unknown indication
     Route: 065
  3. LACOSAMIDE [Concomitant]
     Active Substance: LACOSAMIDE
     Indication: Product used for unknown indication
  4. LACTULOSE [Concomitant]
     Active Substance: LACTULOSE
     Indication: Hepatic encephalopathy
  5. TACROLIMUS [Concomitant]
     Active Substance: TACROLIMUS
     Indication: Product used for unknown indication

REACTIONS (4)
  - Transplant rejection [Recovered/Resolved]
  - Drug interaction [Recovered/Resolved]
  - Rhabdomyolysis [Recovered/Resolved]
  - Acute kidney injury [Recovered/Resolved]
